FAERS Safety Report 5909343-3 (Version None)
Quarter: 2008Q4

REPORT INFORMATION
  Report Type: 
  Country: None (occurrence: None)
  Receive Date: 20081006
  Receipt Date: 20080925
  Transmission Date: 20090506
  Serious: Yes (Death, Other)
  Sender: FDA-Public Use
  Company Number: IT-WYE-H06207508

PATIENT
  Sex: Male

DRUGS (4)
  1. AMIODAR [Suspect]
     Indication: ATRIAL FIBRILLATION
     Dosage: 300 MG ONCE
     Route: 042
     Dates: start: 20080921, end: 20080921
  2. AMIODAR [Suspect]
     Indication: TACHYARRHYTHMIA
  3. AMIODAR [Suspect]
     Indication: VENTRICULAR FAILURE
  4. GLUCOSE [Concomitant]
     Dosage: NOT PROVIDED
     Route: 042

REACTIONS (6)
  - CARDIAC ARREST [None]
  - DYSPNOEA [None]
  - HYPOTENSION [None]
  - HYPOXIA [None]
  - RASH [None]
  - RESPIRATORY ARREST [None]
